FAERS Safety Report 8130438-0 (Version None)
Quarter: 2012Q1

REPORT INFORMATION
  Report Type: 
  Country: None (occurrence: None)
  Receive Date: 20120210
  Receipt Date: 20120206
  Transmission Date: 20120608
  Serious: Yes (Hospitalization, Disabling, Other)
  Sender: FDA-Public Use
  Company Number: MC-ABBOTT-12P-108-0903056-00

PATIENT
  Age: 78 Year
  Sex: Male

DRUGS (2)
  1. ENANTONE 11.25 MG [Suspect]
     Route: 050
     Dates: start: 20071101, end: 20080401
  2. ENANTONE 11.25 MG [Suspect]
     Indication: PROSTATE CANCER
     Route: 065
     Dates: start: 20110101, end: 20111101

REACTIONS (1)
  - DYSPNOEA [None]
